FAERS Safety Report 6025147-8 (Version None)
Quarter: 2008Q4

REPORT INFORMATION
  Report Type: 
  Country: None (occurrence: None)
  Receive Date: 20081231
  Receipt Date: 20081219
  Transmission Date: 20090506
  Serious: Yes (Other)
  Sender: FDA-Public Use
  Company Number: JP-ABBOTT-07P-087-0378207-00

PATIENT
  Age: 68 Year
  Sex: Male

DRUGS (12)
  1. LEUPROLIDE ACETATE [Suspect]
     Indication: PROSTATE CANCER STAGE II
     Route: 058
     Dates: start: 20060721
  2. LEUPROLIDE ACETATE [Suspect]
     Route: 030
     Dates: start: 20050610, end: 20060619
  3. TAKEPRON [Concomitant]
     Indication: REFLUX OESOPHAGITIS
     Route: 048
  4. CASODEX [Concomitant]
     Indication: PROSTATE CANCER STAGE II
     Route: 048
  5. SILECE [Concomitant]
     Indication: INSOMNIA
     Route: 048
  6. ADALAT CC [Concomitant]
     Indication: HYPERTENSION
     Route: 048
  7. ANPLAG [Concomitant]
     Indication: ARTERIOSCLEROSIS OBLITERANS
     Route: 048
  8. ANPLAG [Concomitant]
     Route: 048
     Dates: start: 20060915
  9. NITOROL R [Concomitant]
     Indication: ANGINA PECTORIS
     Route: 048
  10. EPADEL S [Concomitant]
     Indication: ARTERIOSCLEROSIS OBLITERANS
     Route: 048
  11. PLETAL [Concomitant]
     Indication: ARTERIOSCLEROSIS OBLITERANS
     Route: 048
     Dates: start: 20060907
  12. DEPAS [Concomitant]
     Indication: INSOMNIA
     Route: 048
     Dates: start: 20060915, end: 20061226

REACTIONS (4)
  - INJECTION SITE INDURATION [None]
  - INJECTION SITE PAIN [None]
  - NASAL CONGESTION [None]
  - NASAL SINUS CANCER [None]
